FAERS Safety Report 23872960 (Version 1)
Quarter: 2024Q2

REPORT INFORMATION
  Report Type: Spontaneous
  Country: US (occurrence: US)
  Receive Date: 20240520
  Receipt Date: 20240520
  Transmission Date: 20240716
  Serious: Yes (Life-Threatening, Hospitalization, Other)
  Sender: FDA-Public Use
  Company Number: US-JNJFOC-20240539011

PATIENT
  Age: 75 Year
  Sex: Female
  Weight: 83.4 kg

DRUGS (9)
  1. SIMPONI ARIA [Suspect]
     Active Substance: GOLIMUMAB
     Indication: Rheumatoid arthritis
     Route: 040
  2. DUPILUMAB [Suspect]
     Active Substance: DUPILUMAB
     Indication: Sinus polyp degeneration
     Dosage: STRENGTH: 300MG/2ML AT A DOSE OF 300 MG QOW SUBCUTANEOUSLY
     Route: 058
     Dates: start: 20210224
  3. DUPILUMAB [Suspect]
     Active Substance: DUPILUMAB
     Indication: Nasal polyps
  4. METHOTREXATE [Suspect]
     Active Substance: METHOTREXATE
     Indication: Rheumatoid arthritis
     Dosage: THERAPY END DATE: -APR-2023
     Route: 065
  5. METHOTREXATE [Suspect]
     Active Substance: METHOTREXATE
     Dosage: RESTARTED ON -OCT-2023
     Route: 065
     Dates: start: 202310
  6. ETODOLAC [Suspect]
     Active Substance: ETODOLAC
     Indication: Rheumatoid arthritis
     Route: 065
  7. DENOSUMAB [Suspect]
     Active Substance: DENOSUMAB
     Indication: Rheumatoid arthritis
     Route: 065
  8. ETANERCEPT [Suspect]
     Active Substance: ETANERCEPT
     Indication: Rheumatoid arthritis
     Route: 065
  9. SALMETEROL XINAFOATE [Concomitant]
     Active Substance: SALMETEROL XINAFOATE

REACTIONS (21)
  - Dysphagia [Recovered/Resolved]
  - Ulcer [Recovered/Resolved]
  - Diarrhoea [Recovered/Resolved]
  - Malnutrition [Recovered/Resolved]
  - Dyspnoea [Recovered/Resolved]
  - Dehydration [Recovered/Resolved]
  - Blood potassium decreased [Recovered/Resolved]
  - Vitamin D decreased [Recovered/Resolved]
  - Blood iron decreased [Recovered/Resolved]
  - Knee arthroplasty [Recovered/Resolved]
  - Candida infection [Recovered/Resolved]
  - Sepsis [Recovered/Resolved]
  - Herpes virus infection [Recovered/Resolved]
  - Blood calcium decreased [Recovered/Resolved]
  - Swollen tongue [Recovered/Resolved]
  - Post procedural swelling [Recovered/Resolved]
  - Arthritis [Recovered/Resolved]
  - Throat tightness [Recovered/Resolved]
  - Blister [Recovered/Resolved]
  - Oral infection [Recovered/Resolved]
  - Immune system disorder [Recovered/Resolved]

NARRATIVE: CASE EVENT DATE: 20230101
